FAERS Safety Report 8801456 (Version 1)
Quarter: 2012Q4

REPORT INFORMATION
  Report Type: 
  Country: US (occurrence: US)
  Receive Date: 20120921
  Receipt Date: 20120921
  Transmission Date: 20130627
  Serious: Yes (Other)
  Sender: FDA-Public Use
  Company Number: US-ROCHE-1131507

PATIENT
  Age: 45 Year
  Sex: Female

DRUGS (4)
  1. KLONOPIN [Suspect]
     Indication: ANXIETY
     Route: 048
  2. KLONOPIN [Suspect]
     Indication: PANIC ATTACK
     Route: 065
  3. KLONOPIN [Suspect]
     Route: 065
  4. KLONOPIN [Suspect]
     Route: 065

REACTIONS (2)
  - Foetal death [Unknown]
  - Exposure during pregnancy [Unknown]
